FAERS Safety Report 14760817 (Version 1)
Quarter: 2018Q2

REPORT INFORMATION
  Report Type: Report from Study
  Country: US (occurrence: US)
  Receive Date: 20180414
  Receipt Date: 20180414
  Transmission Date: 20180711
  Serious: Yes (Death, Hospitalization)
  Sender: FDA-Public Use
  Company Number: US-JNJFOC-20180407405

PATIENT
  Age: 50 Year
  Sex: Female

DRUGS (5)
  1. TYLENOL 8HR [Suspect]
     Active Substance: ACETAMINOPHEN
     Indication: PRODUCT USED FOR UNKNOWN INDICATION
     Route: 048
  2. TYLENOL 8HR [Suspect]
     Active Substance: ACETAMINOPHEN
     Route: 048
  3. PLAQUENIL [Suspect]
     Active Substance: HYDROXYCHLOROQUINE SULFATE
     Indication: PRODUCT USED FOR UNKNOWN INDICATION
     Route: 065
  4. ALCOHOL. [Suspect]
     Active Substance: ALCOHOL
     Indication: PRODUCT USED FOR UNKNOWN INDICATION
     Route: 065
  5. VISTARIL [Suspect]
     Active Substance: HYDROXYZINE PAMOATE
     Indication: PRODUCT USED FOR UNKNOWN INDICATION
     Route: 065

REACTIONS (15)
  - Nausea [Fatal]
  - Liver function test increased [Fatal]
  - Hypotension [Fatal]
  - International normalised ratio increased [Fatal]
  - Gastrointestinal haemorrhage [Fatal]
  - Blood urea increased [Fatal]
  - Completed suicide [Fatal]
  - Oxygen saturation decreased [Fatal]
  - Toxicity to various agents [Fatal]
  - Abdominal pain upper [Fatal]
  - Hepatomegaly [Fatal]
  - Blood calcium increased [Fatal]
  - Blood creatinine increased [Fatal]
  - Urine output decreased [Fatal]
  - Dehydration [Fatal]
